FAERS Safety Report 8503789-5 (Version None)
Quarter: 2012Q3

REPORT INFORMATION
  Report Type: 
  Country: None (occurrence: None)
  Receive Date: 20120711
  Receipt Date: 20120705
  Transmission Date: 20120928
  Serious: Yes (Other)
  Sender: FDA-Public Use
  Company Number: GB-BAYER-2012-068790

PATIENT
  Age: 60 Year
  Sex: Female

DRUGS (2)
  1. CLOTRIMAZOLE [Suspect]
     Indication: VULVOVAGINAL CANDIDIASIS
  2. HORMONES NOS [Concomitant]
     Indication: HORMONE REPLACEMENT THERAPY

REACTIONS (1)
  - CANDIDIASIS [None]
